FAERS Safety Report 26131544 (Version 1)
Quarter: 2025Q4

REPORT INFORMATION
  Report Type: Spontaneous
  Country: EU (occurrence: EU)
  Receive Date: 20251208
  Receipt Date: 20251208
  Transmission Date: 20260118
  Serious: Yes (Other)
  Sender: ELI LILLY AND COMPANY
  Company Number: EU-ELI_LILLY_AND_COMPANY-FR202512002673

PATIENT
  Age: 83 Year
  Sex: Female

DRUGS (1)
  1. GEMCITABINE HYDROCHLORIDE [Suspect]
     Active Substance: GEMCITABINE HYDROCHLORIDE
     Indication: Ovarian epithelial cancer
     Dosage: 800 MG/M2, UNKNOWN
     Route: 042
     Dates: start: 20250725, end: 20250925

REACTIONS (5)
  - Corneal endothelial disorder [Not Recovered/Not Resolved]
  - Corneal epitheliopathy [Not Recovered/Not Resolved]
  - Ulcerative keratitis [Not Recovered/Not Resolved]
  - Visual acuity reduced [Not Recovered/Not Resolved]
  - Ocular toxicity [Recovering/Resolving]
